FAERS Safety Report 24355580 (Version 1)
Quarter: 2024Q3

REPORT INFORMATION
  Report Type: Spontaneous
  Country: US (occurrence: US)
  Receive Date: 20240924
  Receipt Date: 20240924
  Transmission Date: 20241017
  Serious: No
  Sender: JOHNSON AND JOHNSON
  Company Number: US-JNJFOC-20240939772

PATIENT
  Sex: Female

DRUGS (1)
  1. MENS ROGAINE EXTRA STRENGTH [Suspect]
     Active Substance: MINOXIDIL
     Indication: Alopecia
     Dosage: PRODUCT START DATE: YEARS AGO
     Route: 061

REACTIONS (4)
  - Product use issue [Unknown]
  - Intentional product misuse [Unknown]
  - Product container issue [Unknown]
  - Wrong technique in product usage process [Unknown]
